FAERS Safety Report 9877125 (Version 1)
Quarter: 2014Q1

REPORT INFORMATION
  Report Type: Report from Study
  Country: CA (occurrence: CA)
  Receive Date: 20140206
  Receipt Date: 20140206
  Transmission Date: 20141002
  Serious: Yes (Other)
  Sender: FDA-Public Use
  Company Number: CA-JNJFOC-20140200229

PATIENT
  Age: 69 Year
  Sex: Male
  Weight: 78 kg

DRUGS (10)
  1. REMICADE [Suspect]
     Indication: HIDRADENITIS
     Route: 042
     Dates: start: 20130424
  2. GRAVOL [Concomitant]
     Route: 065
  3. ENALAPRIL [Concomitant]
     Route: 065
  4. OMEPRAZOLE [Concomitant]
     Route: 065
  5. SYNTHROID [Concomitant]
     Route: 065
  6. WARFARIN [Concomitant]
     Route: 065
  7. AMLODIPINE [Concomitant]
     Route: 065
  8. TOLOXIN [Concomitant]
     Route: 065
  9. ATORVASTATIN [Concomitant]
     Route: 065
  10. SECARIS [Concomitant]
     Route: 065

REACTIONS (2)
  - Herpes zoster [Not Recovered/Not Resolved]
  - Off label use [Unknown]
